FAERS Safety Report 18006319 (Version 10)
Quarter: 2022Q1

REPORT INFORMATION
  Report Type: Report from Study
  Country: PR (occurrence: PR)
  Receive Date: 20200710
  Receipt Date: 20220312
  Transmission Date: 20220424
  Serious: Yes (Hospitalization, Other)
  Sender: FDA-Public Use
  Company Number: PR-ABBVIE-20K-131-3473440-00

PATIENT
  Age: 65 Year
  Sex: Female
  Weight: 98.972 kg

DRUGS (33)
  1. HUMIRA [Suspect]
     Active Substance: ADALIMUMAB
     Indication: Rheumatoid arthritis
     Route: 058
     Dates: start: 200407, end: 201911
  2. HUMIRA [Suspect]
     Active Substance: ADALIMUMAB
     Indication: Rheumatoid arthritis
     Route: 058
     Dates: start: 201911, end: 20200611
  3. HUMIRA [Suspect]
     Active Substance: ADALIMUMAB
     Indication: Rheumatoid arthritis
     Route: 058
     Dates: start: 202008, end: 202110
  4. HUMIRA [Suspect]
     Active Substance: ADALIMUMAB
     Route: 058
  5. HUMIRA [Suspect]
     Active Substance: ADALIMUMAB
     Route: 058
  6. HUMIRA [Suspect]
     Active Substance: ADALIMUMAB
     Route: 058
  7. HUMIRA [Suspect]
     Active Substance: ADALIMUMAB
     Route: 058
  8. PLAQUENIL [Suspect]
     Active Substance: HYDROXYCHLOROQUINE SULFATE
     Indication: Rheumatoid arthritis
     Route: 048
     Dates: start: 2004, end: 202011
  9. PLAQUENIL [Suspect]
     Active Substance: HYDROXYCHLOROQUINE SULFATE
     Route: 048
     Dates: end: 202101
  10. PLAQUENIL [Suspect]
     Active Substance: HYDROXYCHLOROQUINE SULFATE
     Route: 048
     Dates: end: 202201
  11. PREDNISONE [Concomitant]
     Active Substance: PREDNISONE
     Indication: Inflammation
     Route: 048
     Dates: start: 2004
  12. PREDNISONE [Concomitant]
     Active Substance: PREDNISONE
     Route: 048
     Dates: start: 200407
  13. CELEBREX [Concomitant]
     Active Substance: CELECOXIB
     Indication: Antiinflammatory therapy
     Route: 048
     Dates: start: 200407, end: 2019
  14. CELEBREX [Concomitant]
     Active Substance: CELECOXIB
     Route: 048
  15. NEXIUM [Concomitant]
     Active Substance: ESOMEPRAZOLE MAGNESIUM
     Indication: Gastric disorder
     Route: 048
     Dates: start: 2004
  16. METHOTREXATE [Concomitant]
     Active Substance: METHOTREXATE
     Indication: Rheumatoid arthritis
     Route: 048
     Dates: start: 200407
  17. VITAMIN B12 [Concomitant]
     Active Substance: CYANOCOBALAMIN
     Indication: Vitamin supplementation
     Route: 048
     Dates: start: 2004
  18. ACTONEL [Concomitant]
     Active Substance: RISEDRONATE SODIUM
     Indication: Bone disorder
     Route: 048
     Dates: start: 2004, end: 2014
  19. ACTONEL [Concomitant]
     Active Substance: RISEDRONATE SODIUM
     Indication: Musculoskeletal disorder
     Route: 048
     Dates: start: 2014
  20. VITAMIN D3 [Concomitant]
     Active Substance: CHOLECALCIFEROL
     Indication: Vitamin supplementation
     Route: 048
     Dates: start: 2004
  21. VITAMIN D3 [Concomitant]
     Active Substance: CHOLECALCIFEROL
     Route: 048
  22. VITAMIN D3 [Concomitant]
     Active Substance: CHOLECALCIFEROL
     Route: 048
     Dates: start: 202106
  23. FOLIC ACID [Concomitant]
     Active Substance: FOLIC ACID
     Indication: Vitamin supplementation
     Route: 048
     Dates: start: 2004
  24. FOLIC ACID [Concomitant]
     Active Substance: FOLIC ACID
     Indication: Rheumatoid arthritis
  25. FISH OIL [Concomitant]
     Active Substance: FISH OIL
     Indication: Supplementation therapy
     Route: 048
  26. PROTECT PLUS SO [Concomitant]
     Indication: Vitamin supplementation
     Route: 048
     Dates: start: 202003
  27. OMEPRAZOLE [Concomitant]
     Active Substance: OMEPRAZOLE
     Indication: Product used for unknown indication
     Route: 048
     Dates: start: 2004
  28. OMEPRAZOLE [Concomitant]
     Active Substance: OMEPRAZOLE
     Indication: Gastric disorder
  29. ZINC [Concomitant]
     Active Substance: ZINC
     Indication: Product used for unknown indication
     Route: 048
     Dates: start: 202006
  30. HERBALS\TURMERIC [Concomitant]
     Active Substance: HERBALS\TURMERIC
     Indication: Antiinflammatory therapy
     Route: 048
     Dates: start: 2020
  31. DICLOFENAC [Concomitant]
     Active Substance: DICLOFENAC
     Indication: Vein disorder
     Route: 061
     Dates: start: 2020
  32. MODERNA COVID-19 VACCINE [Concomitant]
     Active Substance: ELASOMERAN
     Indication: COVID-19 immunisation
     Route: 030
     Dates: start: 20210227, end: 20210227
  33. MODERNA COVID-19 VACCINE [Concomitant]
     Active Substance: ELASOMERAN
     Route: 030
     Dates: start: 20210327, end: 20210327

REACTIONS (21)
  - Pulmonary hypertension [Recovering/Resolving]
  - Blindness [Recovering/Resolving]
  - SARS-CoV-2 test positive [Recovered/Resolved]
  - Cardiac failure [Recovering/Resolving]
  - Pulmonary fibrosis [Recovering/Resolving]
  - Pathological tooth fracture [Recovering/Resolving]
  - Decreased appetite [Recovered/Resolved]
  - Asthenia [Recovering/Resolving]
  - Somnolence [Recovering/Resolving]
  - Red blood cell sedimentation rate increased [Recovering/Resolving]
  - Weight decreased [Recovered/Resolved]
  - Retinal disorder [Not Recovered/Not Resolved]
  - Dental caries [Recovering/Resolving]
  - Arthritis [Recovering/Resolving]
  - Dehydration [Recovered/Resolved]
  - Chronic obstructive pulmonary disease [Recovering/Resolving]
  - Aortic elongation [Recovering/Resolving]
  - Ageusia [Recovered/Resolved]
  - Pyrexia [Recovered/Resolved]
  - Weight increased [Recovering/Resolving]
  - Dyspnoea [Recovering/Resolving]

NARRATIVE: CASE EVENT DATE: 20150101
